FAERS Safety Report 13601744 (Version 2)
Quarter: 2017Q3

REPORT INFORMATION
  Report Type: Report from Study
  Country: JP (occurrence: JP)
  Receive Date: 20170601
  Receipt Date: 20170919
  Transmission Date: 20171127
  Serious: Yes (Death)
  Sender: FDA-Public Use
  Company Number: JP-ACTELION-A-CH2017-154538

PATIENT
  Age: 59 Year
  Sex: Female

DRUGS (10)
  1. BERAPROST NA [Concomitant]
     Active Substance: BERAPROST SODIUM
  2. ISOSORBIDE MONONITRATE. [Concomitant]
     Active Substance: ISOSORBIDE MONONITRATE
  3. OXYGEN. [Concomitant]
     Active Substance: OXYGEN
  4. ALOSENN [Concomitant]
     Active Substance: SENNA LEAF
  5. SENNOSIDE [Concomitant]
     Active Substance: SENNOSIDES
  6. PREDNISOLONE. [Concomitant]
     Active Substance: PREDNISOLONE
  7. LIXIANA [Concomitant]
     Active Substance: EDOXABAN TOSYLATE
  8. JANUVIA [Concomitant]
     Active Substance: SITAGLIPTIN PHOSPHATE
  9. BIOFERMIN [Concomitant]
     Active Substance: BACILLUS SUBTILIS\LACTOBACILLUS ACIDOPHILUS\STREPTOCOCCUS FAECAIS
  10. OPSUMIT [Suspect]
     Active Substance: MACITENTAN
     Indication: PULMONARY ARTERIAL HYPERTENSION
     Dosage: 10 MG, QD
     Route: 048
     Dates: start: 20161209, end: 20161230

REACTIONS (1)
  - Pulmonary hypertension [Fatal]

NARRATIVE: CASE EVENT DATE: 20161228
